FAERS Safety Report 7768386-8 (Version None)
Quarter: 2011Q3

REPORT INFORMATION
  Report Type: 
  Country: None (occurrence: None)
  Receive Date: 20110922
  Receipt Date: 20101027
  Transmission Date: 20111222
  Serious: Yes (Hospitalization)
  Sender: FDA-Public Use
  Company Number: US-ASTRAZENECA-2010SE50934

PATIENT
  Age: 49 Year
  Sex: Male
  Weight: 90.7 kg

DRUGS (12)
  1. SEROQUEL [Suspect]
     Route: 048
  2. SEROQUEL [Suspect]
     Route: 048
  3. KLONOPIN [Concomitant]
  4. SEROQUEL [Suspect]
     Route: 048
  5. SEROQUEL [Suspect]
     Indication: PSYCHOTIC DISORDER
     Route: 048
     Dates: start: 20030101, end: 20060101
  6. SEROQUEL [Suspect]
     Indication: HALLUCINATION, VISUAL
     Route: 048
     Dates: start: 20030101, end: 20060101
  7. ZIAC [Concomitant]
  8. SEROQUEL [Suspect]
     Route: 048
  9. BETA BLOCKER [Concomitant]
  10. SEROQUEL [Suspect]
     Indication: HALLUCINATION, AUDITORY
     Route: 048
     Dates: start: 20030101, end: 20060101
  11. SEROQUEL [Suspect]
     Route: 048
  12. SEROQUEL [Suspect]
     Route: 048

REACTIONS (6)
  - CHEST PAIN [None]
  - WEIGHT DECREASED [None]
  - BLOOD TRIGLYCERIDES INCREASED [None]
  - SOMNOLENCE [None]
  - PSYCHOTIC DISORDER [None]
  - DIABETES MELLITUS [None]
